FAERS Safety Report 21813399 (Version 1)
Quarter: 2023Q1

REPORT INFORMATION
  Report Type: Spontaneous
  Country: BR (occurrence: BR)
  Receive Date: 20230103
  Receipt Date: 20230103
  Transmission Date: 20230418
  Serious: Yes (Other)
  Sender: FDA-Public Use
  Company Number: BR-CELLTRION INC.-2022BR021925

PATIENT

DRUGS (5)
  1. INFLIXIMAB [Suspect]
     Active Substance: INFLIXIMAB
     Indication: Colitis ulcerative
     Dosage: 3 AMPOLOUS EVERY 2 MONTHS
     Route: 042
     Dates: start: 202210
  2. BUPROPION HYDROCHLORIDE [Concomitant]
     Active Substance: BUPROPION HYDROCHLORIDE
     Indication: Depression
     Dosage: 1CP/DAY
     Route: 048
     Dates: start: 2016
  3. RIVOTRIL [Concomitant]
     Active Substance: CLONAZEPAM
     Indication: Depression
     Dosage: 1CP/DAY
     Route: 048
     Dates: start: 2018
  4. AZATHIOPRINE [Concomitant]
     Active Substance: AZATHIOPRINE
     Indication: Colitis ulcerative
     Dosage: 3CP/DAY
     Route: 048
     Dates: start: 202210
  5. QUEPSIA LP [Concomitant]
     Indication: Depression
     Dosage: 1CP/DAY
     Route: 048
     Dates: start: 2018

REACTIONS (4)
  - Intestinal haemorrhage [Unknown]
  - Abdominal distension [Unknown]
  - Abdominal pain upper [Unknown]
  - Therapy interrupted [Unknown]
